FAERS Safety Report 8371463-4 (Version None)
Quarter: 2012Q2

REPORT INFORMATION
  Report Type: 
  Country: None (occurrence: None)
  Receive Date: 20120518
  Receipt Date: 20120511
  Transmission Date: 20120825
  Serious: Yes (Hospitalization)
  Sender: FDA-Public Use
  Company Number: US-US-EMD SERONO, INC.-7017786

PATIENT
  Sex: Female

DRUGS (7)
  1. TOPAMAX [Concomitant]
     Indication: HEADACHE
  2. REBIF [Suspect]
     Indication: MULTIPLE SCLEROSIS
     Route: 058
     Dates: start: 20060101, end: 20060101
  3. DETROL [Concomitant]
     Indication: BLADDER DISORDER
  4. VITAMIN D [Concomitant]
     Indication: ROUTINE HEALTH MAINTENANCE
  5. LORAZEPAM [Concomitant]
     Indication: ANXIETY
  6. PRISTIQ [Concomitant]
     Indication: DEPRESSION
  7. REBIF [Suspect]
     Route: 058
     Dates: start: 20060101, end: 20071101

REACTIONS (4)
  - MULTIPLE SCLEROSIS RELAPSE [None]
  - WRONG DRUG ADMINISTERED [None]
  - PARANOIA [None]
  - DEPRESSION [None]
